FAERS Safety Report 19877955 (Version 1)
Quarter: 2021Q3

REPORT INFORMATION
  Report Type: Spontaneous
  Country: US (occurrence: US)
  Receive Date: 20210923
  Receipt Date: 20210923
  Transmission Date: 20211014
  Serious: Yes (Other)
  Sender: FDA-Public Use
  Company Number: US-GILEAD-2021-0549367

PATIENT

DRUGS (1)
  1. VIREAD [Suspect]
     Active Substance: TENOFOVIR DISOPROXIL FUMARATE
     Indication: PRODUCT USED FOR UNKNOWN INDICATION
     Dosage: UNK
     Route: 048
     Dates: start: 20091020, end: 20170511

REACTIONS (10)
  - Spinal compression fracture [Unknown]
  - Spinal osteoarthritis [Unknown]
  - Intervertebral disc degeneration [Unknown]
  - Multiple fractures [Unknown]
  - Back pain [Unknown]
  - Bone density decreased [Unknown]
  - Lumbar spinal stenosis [Unknown]
  - Facet joint syndrome [Not Recovered/Not Resolved]
  - Osteopenia [Unknown]
  - Scoliosis [Unknown]
